FAERS Safety Report 8383832-7 (Version None)
Quarter: 2012Q2

REPORT INFORMATION
  Report Type: 
  Country: None (occurrence: None)
  Receive Date: 20120524
  Receipt Date: 20120510
  Transmission Date: 20120825
  Serious: Yes (Other)
  Sender: FDA-Public Use
  Company Number: FR-ROCHE-1055526

PATIENT
  Age: 54 Year
  Sex: Female
  Weight: 85 kg

DRUGS (5)
  1. TRAMADOL HCL [Concomitant]
     Indication: PAIN
     Route: 048
  2. LEXOMIL [Concomitant]
     Indication: ANXIETY
     Route: 048
  3. ACTEMRA [Suspect]
     Indication: RHEUMATOID ARTHRITIS
     Route: 042
     Dates: start: 20120102, end: 20120227
  4. CRESTOR [Concomitant]
     Indication: HYPERLIPIDAEMIA
     Route: 048
  5. TERCIAN [Concomitant]
     Indication: DEPRESSION
     Route: 048

REACTIONS (2)
  - RHEUMATOID ARTHRITIS [None]
  - CUTANEOUS VASCULITIS [None]
